FAERS Safety Report 17332781 (Version 2)
Quarter: 2020Q1

REPORT INFORMATION
  Report Type: Report from Study
  Country: US (occurrence: US)
  Receive Date: 20200128
  Receipt Date: 20200306
  Transmission Date: 20200409
  Serious: Yes (Death)
  Sender: FDA-Public Use
  Company Number: US-ASTRAZENECA-2020SE11546

PATIENT
  Age: 23138 Day
  Sex: Female
  Weight: 44.8 kg

DRUGS (2)
  1. TAGRISSO [Suspect]
     Active Substance: OSIMERTINIB
     Indication: EGFR GENE MUTATION
     Dosage: 80.0MG UNKNOWN
     Route: 048
     Dates: start: 20190513, end: 20191215
  2. TAGRISSO [Suspect]
     Active Substance: OSIMERTINIB
     Indication: NON-SMALL CELL LUNG CANCER STAGE IV
     Dosage: 80.0MG UNKNOWN
     Route: 048
     Dates: start: 20190513, end: 20191215

REACTIONS (2)
  - Malignant neoplasm progression [Fatal]
  - Metastases to meninges [Fatal]

NARRATIVE: CASE EVENT DATE: 20200107
